FAERS Safety Report 7015288-0 (Version None)
Quarter: 2010Q3

REPORT INFORMATION
  Report Type: 
  Country: None (occurrence: None)
  Receive Date: 20100922
  Receipt Date: 20100907
  Transmission Date: 20110219
  Serious: Yes (Other)
  Sender: FDA-Public Use
  Company Number: 011033

PATIENT
  Age: 16 Month
  Sex: Male

DRUGS (4)
  1. BUSULFEX [Suspect]
     Indication: CORD BLOOD TRANSPLANT THERAPY
     Dosage: INTRAVENOUS
     Route: 042
  2. FLUDARABINE PHOSPHATE [Concomitant]
  3. CYCLOPHOSPHAMIDE [Concomitant]
  4. ANTI-THYMOCYTE GLOBULIN NOS [Concomitant]

REACTIONS (2)
  - DUCHENNE MUSCULAR DYSTROPHY [None]
  - TRANSPLANT REJECTION [None]
